FAERS Safety Report 5336357-7 (Version None)
Quarter: 2007Q2

REPORT INFORMATION
  Report Type: 
  Country: None (occurrence: None)
  Receive Date: 20070523
  Receipt Date: 20070508
  Transmission Date: 20071010
  Serious: Yes (Other)
  Sender: FDA-Public Use
  Company Number: 8024009

PATIENT
  Age: 42 Year
  Sex: Female
  Weight: 49 kg

DRUGS (16)
  1. KEPPRA [Suspect]
     Indication: CONVULSION PROPHYLAXIS
     Dosage: 500 MG 2/D IV
     Route: 042
     Dates: start: 20070127, end: 20070128
  2. CEFTRIAXONE [Concomitant]
  3. VASOPRESSIN [Concomitant]
  4. PHENYLEPHRINE [Concomitant]
  5. VANCOMYCIN HCL [Concomitant]
  6. ERYTHROMYCIN [Concomitant]
  7. GENTAMICIN [Concomitant]
  8. LOVASTATIN [Concomitant]
  9. METOCLOPRAMIDE [Concomitant]
  10. FERROUS SULFATE [Concomitant]
  11. LANSOPRAZOLE [Concomitant]
  12. MANITOL TAIHO [Concomitant]
  13. MIDODRINE [Concomitant]
  14. INSULIN [Concomitant]
  15. TPN [Concomitant]
  16. SENNA [Concomitant]

REACTIONS (1)
  - PLATELET COUNT DECREASED [None]
